FAERS Safety Report 10089093 (Version 1)
Quarter: 2014Q2

REPORT INFORMATION
  Report Type: Spontaneous
  Country: US (occurrence: None)
  Receive Date: 20140418
  Receipt Date: 20140418
  Transmission Date: 20141212
  Serious: Yes (Other)
  Sender: FDA-Public Use
  Company Number: None

PATIENT
  Age: 37 Day
  Sex: Male
  Weight: 76.66 kg

DRUGS (1)
  1. MIRACLE ZEN TRIPLE [Suspect]
     Indication: SEXUAL DYSFUNCTION
     Dates: start: 20140416

REACTIONS (3)
  - Headache [None]
  - Nervousness [None]
  - Balance disorder [None]
